FAERS Safety Report 10148831 (Version 1)
Quarter: 2014Q2

REPORT INFORMATION
  Report Type: Spontaneous
  Country: IT (occurrence: IT)
  Receive Date: 20140502
  Receipt Date: 20140502
  Transmission Date: 20141212
  Serious: Yes (Hospitalization, Other)
  Sender: FDA-Public Use
  Company Number: 2014SP002461

PATIENT
  Age: 74 Year
  Sex: Male

DRUGS (2)
  1. CARBOPLATIN [Suspect]
     Indication: PRODUCT USED FOR UNKNOWN INDICATION
     Route: 042
     Dates: start: 20131216, end: 20140128
  2. PEMETREXED [Suspect]
     Indication: LUNG CANCER METASTATIC
     Route: 042
     Dates: start: 20131216, end: 20140128

REACTIONS (1)
  - Staphylococcal sepsis [Recovered/Resolved]
